FAERS Safety Report 8731847 (Version 2)
Quarter: 2012Q4

REPORT INFORMATION
  Report Type: 
  Country: US (occurrence: US)
  Receive Date: 20120820
  Receipt Date: 20121105
  Transmission Date: 20130627
  Serious: Yes (Death)
  Sender: FDA-Public Use
  Company Number: US-ELI_LILLY_AND_COMPANY-US201208004354

PATIENT
  Age: 58 Year
  Sex: Female
  Weight: 48.98 kg

DRUGS (20)
  1. FORTEO [Suspect]
     Indication: OSTEOPOROSIS
     Dosage: 20 u, qd
     Route: 058
     Dates: start: 20110425
  2. CITRACAL + D [Concomitant]
     Indication: OSTEOPOROSIS
     Dosage: 2 DF, bid
  3. VITAMIN D [Concomitant]
     Indication: OSTEOPOROSIS
     Dosage: 50000 u, weekly (1/W)
  4. MULTIVITAMIN [Concomitant]
     Dosage: 1 DF, qd
  5. ACIDOPHILUS [Concomitant]
     Dosage: 1 DF, each morning
  6. VITAMIN C [Concomitant]
     Dosage: 500 mg, bid
  7. PILOCARPINE [Concomitant]
     Indication: DRY MOUTH
     Dosage: 7.5 mg, tid
  8. LEVOXYL [Concomitant]
     Indication: HYPOTHYROIDISM
     Dosage: 0.125 mg, qd
  9. ZANTAC [Concomitant]
     Indication: GASTROOESOPHAGEAL REFLUX DISEASE
     Dosage: 150 mg, each evening
  10. NEXIUM [Concomitant]
     Indication: GASTROOESOPHAGEAL REFLUX DISEASE
     Dosage: 40 mg, each morning
  11. LACTULOSE [Concomitant]
     Indication: CONSTIPATION
     Dosage: 15 ml, bid
     Route: 048
  12. MIRALAX [Concomitant]
     Indication: CONSTIPATION
     Dosage: 17 g, other
  13. ASA [Concomitant]
     Indication: CEREBROVASCULAR ACCIDENT PROPHYLAXIS
     Dosage: 81 mg, qd
  14. MACROBID [Concomitant]
     Indication: INFECTION PROPHYLAXIS
     Dosage: 100 mg, qd
  15. REFRESH PM [Concomitant]
     Indication: DRY EYE
     Dosage: UNK, each evening
     Route: 047
  16. AQUANIL [Concomitant]
     Indication: RASH
     Dosage: UNK, bid
  17. ACZONE [Concomitant]
     Indication: RASH
     Dosage: UNK, prn
  18. BIOTENE [Concomitant]
  19. CARMEX [Concomitant]
     Indication: LIP DRY
     Dosage: UNK, prn
  20. DEBROX [Concomitant]
     Indication: CERUMEN REMOVAL
     Dosage: UNK, other

REACTIONS (1)
  - Dementia [Fatal]
